FAERS Safety Report 9002329 (Version 2)
Quarter: 2013Q1

REPORT INFORMATION
  Report Type: Spontaneous
  Country: DK (occurrence: JP)
  Receive Date: 20130107
  Receipt Date: 20130313
  Transmission Date: 20140127
  Serious: Yes (Other)
  Sender: FDA-Public Use
  Company Number: JP-FRI-1000040680

PATIENT
  Age: 82 Year
  Sex: Female

DRUGS (8)
  1. LEXAPRO [Suspect]
     Indication: DEPRESSION
     Dosage: 20 MG
     Route: 048
     Dates: start: 20111005, end: 20121031
  2. BETAMAC [Suspect]
     Indication: ANXIETY DISORDER
     Dosage: 150 MG
     Route: 048
     Dates: start: 20110531, end: 20121031
  3. SOLANAX [Concomitant]
     Indication: ANXIETY DISORDER
     Dosage: 1.2 MG
     Route: 048
     Dates: start: 20110531
  4. MYSLEE [Concomitant]
     Indication: INSOMNIA
     Dosage: 10 MG
     Route: 048
     Dates: start: 20110531
  5. MEXITIL [Concomitant]
     Indication: ARRHYTHMIA
     Dosage: 150 MG
     Route: 048
     Dates: start: 20120424
  6. DIOVAN [Concomitant]
     Indication: HYPERTENSION
     Dosage: 40 MG
     Route: 048
     Dates: start: 20120424
  7. ACTONEL [Concomitant]
     Indication: OSTEOPOROSIS
     Dosage: 2.5 MG
     Route: 048
     Dates: start: 20120424
  8. MAGMITT [Concomitant]
     Indication: CONSTIPATION
     Dosage: 990 MG
     Route: 048
     Dates: start: 20120424

REACTIONS (2)
  - Long QT syndrome [Recovered/Resolved]
  - Ventricular extrasystoles [Recovered/Resolved]
